FAERS Safety Report 20899724 (Version 1)
Quarter: 2022Q2

REPORT INFORMATION
  Report Type: Other
  Country: US (occurrence: None)
  Receive Date: 20220601
  Receipt Date: 20220601
  Transmission Date: 20220721
  Serious: Yes (Death)
  Sender: FDA-Public Use
  Company Number: US-ROCHE-3106989

PATIENT
  Age: 75 Year
  Sex: Female

DRUGS (3)
  1. CAPECITABINE [Suspect]
     Active Substance: CAPECITABINE
     Indication: Metastatic gastric cancer
     Route: 048
  2. DARBEPOETIN ALFA [Concomitant]
     Active Substance: DARBEPOETIN ALFA
  3. ANASTROZOLE [Concomitant]
     Active Substance: ANASTROZOLE

REACTIONS (1)
  - Disease progression [Fatal]
